FAERS Safety Report 24124491 (Version 1)
Quarter: 2024Q3

REPORT INFORMATION
  Report Type: Spontaneous
  Country: HK (occurrence: HK)
  Receive Date: 20240723
  Receipt Date: 20240723
  Transmission Date: 20241017
  Serious: Yes (Death)
  Sender: CHEPLAPHARM
  Company Number: HK-ROCHE-10000025258

PATIENT
  Age: 66 Year
  Sex: Male

DRUGS (6)
  1. CAPECITABINE [Suspect]
     Active Substance: CAPECITABINE
     Indication: Hepatic cancer
  2. OXALIPLATIN [Suspect]
     Active Substance: OXALIPLATIN
     Indication: Hepatic cancer metastatic
  3. SORAFENIB [Suspect]
     Active Substance: SORAFENIB
     Indication: Hepatic cancer metastatic
  4. LAMIVUDINE [Concomitant]
     Active Substance: LAMIVUDINE
  5. VITAMIN B6 [Concomitant]
     Active Substance: PYRIDOXINE HYDROCHLORIDE
  6. FAMOTIDINE [Concomitant]
     Active Substance: FAMOTIDINE

REACTIONS (7)
  - Haematemesis [Fatal]
  - Asthma [Fatal]
  - Respiratory failure [Fatal]
  - General physical health deterioration [Fatal]
  - Upper gastrointestinal haemorrhage [Fatal]
  - Upper respiratory tract infection [Fatal]
  - Off label use [Fatal]

NARRATIVE: CASE EVENT DATE: 20080801
